FAERS Safety Report 20785063 (Version 1)
Quarter: 2022Q2

REPORT INFORMATION
  Report Type: Spontaneous
  Country: US (occurrence: None)
  Receive Date: 20220503
  Receipt Date: 20220503
  Transmission Date: 20220721
  Serious: Yes (Other)
  Sender: FDA-Public Use
  Company Number: None

PATIENT
  Age: 47 Year
  Sex: Female
  Weight: 54 kg

DRUGS (3)
  1. EFFEXOR [Suspect]
     Active Substance: VENLAFAXINE HYDROCHLORIDE
     Indication: Post-traumatic stress disorder
     Dosage: OTHER QUANTITY : 1 CAPSULE(S);?
     Route: 048
     Dates: start: 20210616, end: 20211215
  2. TRADER JOE^S MULTI-VITAMIN FOR WOMEN [Concomitant]
  3. PURE BOOST ENERGY DRINK [Concomitant]

REACTIONS (3)
  - Heavy menstrual bleeding [None]
  - Therapy cessation [None]
  - Product dosage form confusion [None]

NARRATIVE: CASE EVENT DATE: 20211117
